FAERS Safety Report 8609140-4 (Version None)
Quarter: 2012Q3

REPORT INFORMATION
  Report Type: 
  Country: None (occurrence: None)
  Receive Date: 20120821
  Receipt Date: 20120628
  Transmission Date: 20120928
  Serious: No
  Sender: FDA-Public Use
  Company Number: US-009507513-2012SP032259

PATIENT

DRUGS (1)
  1. DULERA [Suspect]
     Dosage: 2 PUFFS , BID 100/5
     Route: 055
     Dates: start: 20120606

REACTIONS (1)
  - TOOTH DISORDER [None]
